FAERS Safety Report 20082362 (Version 1)
Quarter: 2021Q4

REPORT INFORMATION
  Report Type: Spontaneous
  Country: US (occurrence: US)
  Receive Date: 20211117
  Receipt Date: 20211117
  Transmission Date: 20220303
  Serious: Yes (Other)
  Sender: FDA-Public Use
  Company Number: US-PFIZER INC-202101528749

PATIENT
  Age: 64 Year
  Sex: Female
  Weight: 88.45 kg

DRUGS (1)
  1. TRIAZOLAM [Suspect]
     Active Substance: TRIAZOLAM
     Dosage: 0.25 MG, DAILY (ONE TABLET EVERY DAY AT BED TIME AS NEEDED)

REACTIONS (5)
  - Drug dependence [Unknown]
  - Weight decreased [Unknown]
  - Illness [Unknown]
  - Rapid eye movements sleep abnormal [Unknown]
  - Sleep disorder [Unknown]
